FAERS Safety Report 18595221 (Version 1)
Quarter: 2020Q4

REPORT INFORMATION
  Report Type: Spontaneous
  Country: FR (occurrence: FR)
  Receive Date: 20201209
  Receipt Date: 20201209
  Transmission Date: 20210114
  Serious: Yes (Hospitalization)
  Sender: FDA-Public Use
  Company Number: NVSC2020FR321276

PATIENT
  Age: 26 Year
  Sex: Male
  Weight: 51 kg

DRUGS (3)
  1. TERCIAN [Suspect]
     Active Substance: CYAMEMAZINE
     Indication: PSYCHOTIC DISORDER
     Dosage: UNK
     Route: 048
     Dates: start: 20200907, end: 20200924
  2. MIANSERINE ARROW [Suspect]
     Active Substance: MIANSERIN HYDROCHLORIDE
     Indication: PSYCHOTIC DISORDER
     Dosage: UNK
     Route: 048
     Dates: start: 20200916, end: 20200924
  3. AMOXICILLINE ACIDE CLAVULANIQUE SANDOZ [Suspect]
     Active Substance: AMOXICILLIN\CLAVULANATE POTASSIUM
     Indication: PERITONSILLAR ABSCESS
     Dosage: UNK
     Route: 048
     Dates: start: 20200907, end: 20200917

REACTIONS (2)
  - Cholangitis [Not Recovered/Not Resolved]
  - Hepatocellular injury [Recovering/Resolving]

NARRATIVE: CASE EVENT DATE: 20200924
